FAERS Safety Report 12446269 (Version 3)
Quarter: 2016Q2

REPORT INFORMATION
  Report Type: Spontaneous
  Country: US (occurrence: US)
  Receive Date: 20160608
  Receipt Date: 20160616
  Transmission Date: 20160815
  Serious: Yes (Hospitalization)
  Sender: FDA-Public Use
  Company Number: US-HORIZON-BUP-0064-2016

PATIENT
  Age: 12 Year
  Sex: Female
  Weight: 24 kg

DRUGS (3)
  1. LEVETIRACETAM. [Concomitant]
     Active Substance: LEVETIRACETAM
     Dosage: 2-5 ML, TWICE DAILY
  2. ETHOSUXIMIDE. [Concomitant]
     Active Substance: ETHOSUXIMIDE
     Dosage: 5 ML, TWICE DAILY
  3. BUPHENYL [Suspect]
     Active Substance: SODIUM PHENYLBUTYRATE
     Indication: ARGINASE DEFICIENCY
     Dosage: 6 TABLETS TID PRESCRIBED, MOTHER ADMINISTERED ONLY 3 TABLETS TID

REACTIONS (6)
  - Hepatic enzyme increased [Unknown]
  - International normalised ratio increased [Unknown]
  - Incorrect dose administered [Unknown]
  - Lethargy [Recovering/Resolving]
  - Ammonia increased [Recovering/Resolving]
  - Muscle contracture [Recovering/Resolving]

NARRATIVE: CASE EVENT DATE: 20160604
